FAERS Safety Report 8036403-6 (Version None)
Quarter: 2012Q1

REPORT INFORMATION
  Report Type: 
  Country: None (occurrence: None)
  Receive Date: 20120106
  Receipt Date: 20111228
  Transmission Date: 20120608
  Serious: Yes (Other)
  Sender: FDA-Public Use
  Company Number: 2011MA018183

PATIENT
  Sex: Male

DRUGS (1)
  1. FINASTERIDE [Suspect]

REACTIONS (1)
  - GYNAECOMASTIA [None]
